FAERS Safety Report 8519745-7 (Version None)
Quarter: 2012Q3

REPORT INFORMATION
  Report Type: 
  Country: None (occurrence: None)
  Receive Date: 20120719
  Receipt Date: 20120710
  Transmission Date: 20120928
  Serious: No
  Sender: FDA-Public Use
  Company Number: US-BIOGENIDEC-2010BI037144

PATIENT
  Sex: Female

DRUGS (1)
  1. TYSABRI [Suspect]
     Indication: MULTIPLE SCLEROSIS
     Route: 042
     Dates: start: 20100309

REACTIONS (10)
  - ARTHROPOD BITE [None]
  - FOOD ALLERGY [None]
  - MUSCULAR WEAKNESS [None]
  - CELLULITIS [None]
  - URINARY RETENTION [None]
  - HYPERSENSITIVITY [None]
  - PAIN IN EXTREMITY [None]
  - DRUG HYPERSENSITIVITY [None]
  - MUSCLE SPASMS [None]
  - HEADACHE [None]
